FAERS Safety Report 5215587-9 (Version None)
Quarter: 2007Q1

REPORT INFORMATION
  Report Type: 
  Country: None (occurrence: None)
  Receive Date: 20070123
  Receipt Date: 20070115
  Transmission Date: 20070707
  Serious: Yes (Other)
  Sender: FDA-Public Use
  Company Number: BE-ELI_LILLY_AND_COMPANY-BE200701000100

PATIENT
  Sex: Male

DRUGS (4)
  1. CIALIS [Suspect]
     Indication: ERECTILE DYSFUNCTION
     Dosage: UNK, UNKNOWN
     Route: 048
  2. INDERAL [Concomitant]
     Indication: CARDIAC DISORDER
  3. ACCUPRIL [Concomitant]
  4. LIPITOR [Concomitant]

REACTIONS (4)
  - EYE OEDEMA [None]
  - EYELID OEDEMA [None]
  - MALAISE [None]
  - VISUAL DISTURBANCE [None]
